FAERS Safety Report 14744367 (Version 1)
Quarter: 2018Q2

REPORT INFORMATION
  Report Type: Spontaneous
  Country: US (occurrence: US)
  Receive Date: 20180405
  Receipt Date: 20180405
  Transmission Date: 20180711
  Serious: Yes (Life-Threatening, Hospitalization)
  Sender: FDA-Public Use
  Company Number: None

PATIENT
  Age: 84 Year
  Sex: Male
  Weight: 88 kg

DRUGS (2)
  1. LISINOPRIL. [Suspect]
     Active Substance: LISINOPRIL
     Route: 048
     Dates: start: 20120213, end: 20180316
  2. FERRIC NA GLUCONATE [Suspect]
     Active Substance: SODIUM FERRIC GLUCONATE COMPLEX
     Route: 042
     Dates: start: 20180207, end: 20180316

REACTIONS (7)
  - Swollen tongue [None]
  - Retching [None]
  - Nausea [None]
  - Abdominal pain [None]
  - Angioedema [None]
  - Dizziness [None]
  - Hypoxia [None]

NARRATIVE: CASE EVENT DATE: 20180316
